FAERS Safety Report 24300908 (Version 2)
Quarter: 2024Q3

REPORT INFORMATION
  Report Type: Spontaneous
  Country: DE (occurrence: DE)
  Receive Date: 20240910
  Receipt Date: 20240918
  Transmission Date: 20241016
  Serious: Yes (Hospitalization)
  Sender: SANDOZ
  Company Number: DE-009507513-2408DEU010603

PATIENT
  Sex: Female
  Weight: 130 kg

DRUGS (8)
  1. CARBOPLATIN [Suspect]
     Active Substance: CARBOPLATIN
     Indication: Non-small cell lung cancer
     Dosage: 683 UNK
     Route: 065
     Dates: start: 20240718
  2. CARBOPLATIN [Suspect]
     Active Substance: CARBOPLATIN
     Dosage: 800 MG
     Route: 065
     Dates: start: 20240502
  3. PEMETREXED [Suspect]
     Active Substance: PEMETREXED
     Indication: Non-small cell lung cancer
     Dosage: 1000 MG
     Route: 065
     Dates: start: 20240502, end: 20240523
  4. PEMBROLIZUMAB [Suspect]
     Active Substance: PEMBROLIZUMAB
     Indication: Non-small cell lung cancer
     Dosage: 200MG
     Route: 065
     Dates: start: 20240502, end: 20240718
  5. APIXABAN [Concomitant]
     Active Substance: APIXABAN
     Indication: Product used for unknown indication
     Dosage: 5 MG 1-0-1
     Route: 065
  6. Kalinor-retard [Concomitant]
     Indication: Product used for unknown indication
     Dosage: 600 MG 2-2-2
     Route: 065
  7. METAMIZOLE [Concomitant]
     Active Substance: METAMIZOLE
     Indication: Product used for unknown indication
     Dosage: 20-30 DROPS PRN
     Route: 065
  8. ONDANSETRON [Concomitant]
     Active Substance: ONDANSETRON
     Indication: Product used for unknown indication
     Dosage: 4 MILLIGRAM, PRN
     Route: 065

REACTIONS (1)
  - Dizziness [Recovered/Resolved]

NARRATIVE: CASE EVENT DATE: 20240725
